FAERS Safety Report 7869541 (Version 4)
Quarter: 2012Q4

REPORT INFORMATION
  Report Type: Report from Study
  Country: JP (occurrence: JP)
  Receive Date: 20110324
  Receipt Date: 20121114
  Transmission Date: 20130627
  Serious: Yes (Death, Other)
  Sender: FDA-Public Use
  Company Number: PHHY2011JP19645

PATIENT
  Age: 76 Year
  Sex: Male
  Weight: 68 kg

DRUGS (12)
  1. ICL670A [Suspect]
     Indication: MYELODYSPLASTIC SYNDROME
     Dosage: 500 mg daily
     Route: 048
     Dates: start: 20091026, end: 20091203
  2. ICL670A [Suspect]
     Dosage: 500 mg daily
     Route: 048
     Dates: start: 20100603, end: 20110602
  3. ITRIZOLE [Concomitant]
     Indication: PROPHYLAXIS
     Dosage: 10 ml, UNK
     Route: 048
     Dates: start: 20091026
  4. ITRIZOLE [Concomitant]
     Dosage: 10 ml, UNK
     Route: 048
     Dates: end: 20101021
  5. BAKTAR [Concomitant]
     Indication: PROPHYLAXIS
     Dosage: 01 DF, UNK
     Route: 045
     Dates: start: 20091026, end: 20110520
  6. KLARICID [Concomitant]
     Indication: PROPHYLAXIS
     Dosage: 400 mg, UNK
     Route: 048
     Dates: start: 20091026, end: 20111021
  7. PRIMOBOLAN [Concomitant]
     Indication: MYELODYSPLASTIC SYNDROME
     Dosage: 10 mg, UNK
     Route: 048
     Dates: start: 20091026
  8. PRIMOBOLAN [Concomitant]
     Dosage: 10 mg, UNK
     Route: 048
     Dates: end: 20101026
  9. ZYLORIC [Concomitant]
     Indication: PROPHYLAXIS
     Dosage: 100 mg, UNK
     Route: 048
     Dates: start: 20100225
  10. ZYLORIC [Concomitant]
     Dosage: 100 mg, UNK
     Route: 048
     Dates: end: 20100901
  11. RED BLOOD CELLS, LEUCOCYTE DEPLETED [Concomitant]
     Dosage: 02 units every 2 weeks
     Dates: start: 20091026, end: 20091225
  12. RED BLOOD CELLS, LEUCOCYTE DEPLETED [Concomitant]
     Dosage: 02 units every 4 weeks
     Dates: start: 20100325

REACTIONS (8)
  - Myelodysplastic syndrome [Fatal]
  - Disease progression [Fatal]
  - Liver disorder [Recovered/Resolved]
  - Haemoglobin decreased [Not Recovered/Not Resolved]
  - Haematocrit decreased [Not Recovered/Not Resolved]
  - White blood cell count decreased [Not Recovered/Not Resolved]
  - Blood creatinine increased [Not Recovered/Not Resolved]
  - Platelet count decreased [Not Recovered/Not Resolved]
